FAERS Safety Report 8504143-2 (Version None)
Quarter: 2012Q2

REPORT INFORMATION
  Report Type: 
  Country: None (occurrence: None)
  Receive Date: 20120405
  Receipt Date: 20101116
  Transmission Date: 20120825
  Serious: Yes (Disabling)
  Sender: FDA-Public Use
  Company Number: PHHY2010US75456

PATIENT
  Age: 58 Year
  Sex: Female
  Weight: 70.7 kg

DRUGS (4)
  1. PAROXETINE HCL [Concomitant]
  2. RECLAST [Suspect]
     Indication: OSTEOPENIA
     Dosage: 5 MG/ 100 ML/ YEAR, INTRAVENOUS
     Route: 042
     Dates: start: 20100930
  3. PROBENO [Concomitant]
  4. VITAMIN D [Concomitant]

REACTIONS (5)
  - BONE PAIN [None]
  - NODULE [None]
  - PAIN IN EXTREMITY [None]
  - MUSCLE SPASMS [None]
  - MUSCULOSKELETAL STIFFNESS [None]
